FAERS Safety Report 11619075 (Version 1)
Quarter: 2015Q4

REPORT INFORMATION
  Report Type: Spontaneous
  Country: SA (occurrence: SA)
  Receive Date: 20151012
  Receipt Date: 20151012
  Transmission Date: 20160304
  Serious: Yes (Death, Hospitalization, Other)
  Sender: FDA-Public Use
  Company Number: SA-BAYER-2015-438539

PATIENT
  Age: 30 Year
  Sex: Male

DRUGS (1)
  1. SORAFENIB (RAF KINASE INHIBITOR) [Suspect]
     Active Substance: SORAFENIB
     Indication: MEDULLARY THYROID CANCER
     Dosage: 400 MG, BID
     Route: 048

REACTIONS (4)
  - Cardio-respiratory arrest [Fatal]
  - Acute hepatic failure [None]
  - Pneumonia streptococcal [None]
  - Pleural effusion [None]
